FAERS Safety Report 7585637-3 (Version None)
Quarter: 2011Q3

REPORT INFORMATION
  Report Type: 
  Country: None (occurrence: None)
  Receive Date: 20110701
  Receipt Date: 20110701
  Transmission Date: 20111222
  Serious: No
  Sender: FDA-Public Use
  Company Number: None

PATIENT
  Sex: Male
  Weight: 87.543 kg

DRUGS (1)
  1. METHYLPHENIDATE HCL [Suspect]
     Indication: ATTENTION DEFICIT/HYPERACTIVITY DISORDER
     Dosage: 2X27 -54MG TABS NOT AVAILABLE-
     Route: 048
     Dates: start: 20110628, end: 20110628

REACTIONS (4)
  - PRODUCT SUBSTITUTION ISSUE [None]
  - AGITATION [None]
  - AGGRESSION [None]
  - IMPAIRED DRIVING ABILITY [None]
